FAERS Safety Report 5105015-6 (Version None)
Quarter: 2006Q3

REPORT INFORMATION
  Report Type: 
  Country: None (occurrence: None)
  Receive Date: 20060911
  Receipt Date: 20060825
  Transmission Date: 20061208
  Serious: Yes (Hospitalization)
  Sender: FDA-Public Use
  Company Number: US200608005219

PATIENT
  Age: 77 Year
  Sex: Female
  Weight: 62.6 kg

DRUGS (3)
  1. CYMBALTA [Suspect]
     Indication: NEUROPATHY
     Dates: start: 20050712, end: 20060719
  2. VALSARTAN [Concomitant]
  3. HYDROCHLOROTHIAZIDE [Concomitant]

REACTIONS (3)
  - ASTHENIA [None]
  - FALL [None]
  - HYPONATRAEMIA [None]
